APPROVED DRUG PRODUCT: DROSPIRENONE AND ESTRADIOL
Active Ingredient: DROSPIRENONE; ESTRADIOL
Strength: 0.5MG;1MG
Dosage Form/Route: TABLET;ORAL
Application: A218031 | Product #001 | TE Code: AB
Applicant: NOVAST LABORATORIES LTD
Approved: Oct 28, 2025 | RLD: No | RS: No | Type: RX